FAERS Safety Report 9990428 (Version 1)
Quarter: 2014Q1

REPORT INFORMATION
  Report Type: Spontaneous
  Country: US (occurrence: US)
  Receive Date: 20140310
  Receipt Date: 20140310
  Transmission Date: 20141002
  Serious: Yes (Other)
  Sender: FDA-Public Use
  Company Number: US-GLENMARK GENERICS INC.-2014GMK008762

PATIENT
  Sex: Female

DRUGS (1)
  1. NORGESTIMATE AND ETHINYL ESTRADIOL [Suspect]
     Indication: PRODUCT USED FOR UNKNOWN INDICATION
     Dosage: 1 DF, OD
     Route: 048
     Dates: start: 20140119, end: 20140129

REACTIONS (6)
  - Cardiac flutter [Recovered/Resolved]
  - Heart rate increased [Recovered/Resolved]
  - Hunger [Recovered/Resolved]
  - Insomnia [Recovered/Resolved]
  - Mood altered [Recovered/Resolved]
  - Product quality issue [None]
